FAERS Safety Report 9278990 (Version 1)
Quarter: 2013Q2

REPORT INFORMATION
  Report Type: Spontaneous
  Country: FR (occurrence: FR)
  Receive Date: 20130508
  Receipt Date: 20130508
  Transmission Date: 20140414
  Serious: Yes (Other)
  Sender: FDA-Public Use
  Company Number: FR-GLAXOSMITHKLINE-B0889077A

PATIENT
  Age: 51 Year
  Sex: Female

DRUGS (1)
  1. MALARONE [Suspect]
     Indication: MALARIA PROPHYLAXIS
     Dosage: 1TAB PER DAY
     Route: 048
     Dates: start: 20130309, end: 20130329

REACTIONS (4)
  - Vasculitis [Recovered/Resolved]
  - Rash papular [Recovered/Resolved]
  - Prurigo [Recovered/Resolved]
  - Toxic skin eruption [Recovered/Resolved]
